FAERS Safety Report 6604811-3 (Version None)
Quarter: 2010Q1

REPORT INFORMATION
  Report Type: 
  Country: None (occurrence: None)
  Receive Date: 20100226
  Receipt Date: 20100219
  Transmission Date: 20100710
  Serious: Yes (Other)
  Sender: FDA-Public Use
  Company Number: US-ROCHE-686830

PATIENT
  Sex: Male
  Weight: 63.5 kg

DRUGS (3)
  1. INVIRASE [Suspect]
     Dosage: FREQUENCY: DAILY
     Route: 048
     Dates: start: 20090801
  2. NORVIR [Concomitant]
  3. DEPAKOTE [Concomitant]

REACTIONS (2)
  - CONVULSION [None]
  - DIALYSIS [None]
